FAERS Safety Report 24412614 (Version 1)
Quarter: 2024Q4

REPORT INFORMATION
  Report Type: Spontaneous
  Country: US (occurrence: US)
  Receive Date: 20241008
  Receipt Date: 20241008
  Transmission Date: 20250115
  Serious: Yes (Hospitalization)
  Sender: CMP PHARMA
  Company Number: US-CMP PHARMA-2024CMP00059

PATIENT
  Age: 57 Year
  Sex: Female

DRUGS (1)
  1. AMLODIPINE [Suspect]
     Active Substance: AMLODIPINE BESYLATE
     Dosage: 87 ^PILLS^

REACTIONS (5)
  - Overdose [Recovered/Resolved]
  - Non-cardiogenic pulmonary oedema [Recovered/Resolved]
  - Hyperglycaemia [Recovered/Resolved]
  - Blood insulin abnormal [Recovered/Resolved]
  - Acute respiratory distress syndrome [Recovered/Resolved]
